FAERS Safety Report 6673829-7 (Version None)
Quarter: 2010Q2

REPORT INFORMATION
  Report Type: 
  Country: None (occurrence: None)
  Receive Date: 20100407
  Receipt Date: 20100324
  Transmission Date: 20101027
  Serious: Yes (Other)
  Sender: FDA-Public Use
  Company Number: AXC-2010-000073

PATIENT
  Sex: Male

DRUGS (3)
  1. PHOTOFRIN (PORFIMER SODIUM) POWDER FOR SOLUTION FOR INJECTION, 75MG [Suspect]
     Indication: NON-SMALL CELL LUNG CANCER
     Dosage: 2 MG/KG BODY WEIGHT, SINGLE, INTRAVENOUS
     Route: 042
     Dates: start: 20061004, end: 20061004
  2. IRINOTECAN (IRINOTECAN) UNKNOWN [Suspect]
     Indication: NON-SMALL CELL LUNG CANCER
     Dates: start: 20060101
  3. CISPLATIN [Suspect]
     Indication: NON-SMALL CELL LUNG CANCER
     Dates: start: 20060101

REACTIONS (5)
  - DYSPHAGIA [None]
  - LOWER RESPIRATORY TRACT INFLAMMATION [None]
  - MALIGNANT NEOPLASM PROGRESSION [None]
  - PNEUMONIA [None]
  - RADIATION OESOPHAGITIS [None]
